FAERS Safety Report 8954257 (Version 2)
Quarter: 2013Q4

REPORT INFORMATION
  Report Type: Report from Study
  Country: MX (occurrence: MX)
  Receive Date: 20121207
  Receipt Date: 20131218
  Transmission Date: 20140711
  Serious: Yes (Other)
  Sender: FDA-Public Use
  Company Number: PHHY2012MX112775

PATIENT
  Age: 54 Year
  Sex: Female

DRUGS (2)
  1. EXELON PATCH [Suspect]
     Indication: MULTIPLE SCLEROSIS
     Dosage: 9.5 MG (PATCH 10 CM2), DAILY
     Route: 062
     Dates: start: 201307
  2. EXELON PATCH [Suspect]
     Indication: OFF LABEL USE

REACTIONS (5)
  - Multiple sclerosis [Not Recovered/Not Resolved]
  - Mutism [Not Recovered/Not Resolved]
  - Abasia [Not Recovered/Not Resolved]
  - Eating disorder [Not Recovered/Not Resolved]
  - Malaise [Not Recovered/Not Resolved]
